FAERS Safety Report 4699699-4 (Version None)
Quarter: 2005Q2

REPORT INFORMATION
  Report Type: 
  Country: None (occurrence: None)
  Receive Date: 20050623
  Receipt Date: 20050607
  Transmission Date: 20051028
  Serious: Yes (Life-Threatening, Hospitalization)
  Sender: FDA-Public Use
  Company Number: DSA_26612_2005

PATIENT
  Age: 75 Year
  Sex: Male

DRUGS (6)
  1. ENALAPRIL MALEATE [Suspect]
     Indication: ESSENTIAL HYPERTENSION
     Dosage: 20 MG QD PO
     Route: 048
     Dates: end: 20050519
  2. DILTIAZEM HYDROCHLORIDE [Suspect]
     Indication: MYOCARDIAL ISCHAEMIA
     Dosage: 120 MG PO
     Route: 048
  3. ZYLORIC ^FAES^ [Concomitant]
  4. AMLODIPINE BESYLATE [Concomitant]
  5. INSULIN              /DZE/ [Concomitant]
  6. NITRODERM [Concomitant]

REACTIONS (5)
  - BLOOD SODIUM DECREASED [None]
  - BUNDLE BRANCH BLOCK LEFT [None]
  - DRUG INTERACTION [None]
  - HYPERKALAEMIA [None]
  - NODAL ARRHYTHMIA [None]
